FAERS Safety Report 11930475 (Version 1)
Quarter: 2016Q1

REPORT INFORMATION
  Report Type: Spontaneous
  Country: US (occurrence: None)
  Receive Date: 20160120
  Receipt Date: 20160120
  Transmission Date: 20160526
  Serious: Yes (Other)
  Sender: FDA-Public Use
  Company Number: None

PATIENT
  Age: 61 Year
  Sex: Female

DRUGS (9)
  1. LETAIRIS [Suspect]
     Active Substance: AMBRISENTAN
     Indication: PULMONARY ARTERIAL HYPERTENSION
     Route: 048
     Dates: start: 201112
  2. EDECRIN [Concomitant]
     Active Substance: ETHACRYNIC ACID
  3. NORTRIPTYLINE [Concomitant]
     Active Substance: NORTRIPTYLINE
  4. VELETRI [Concomitant]
     Active Substance: EPOPROSTENOL
  5. ALBUTEROL. [Concomitant]
     Active Substance: ALBUTEROL
  6. DIGOXIN. [Concomitant]
     Active Substance: DIGOXIN
  7. FLUTICASONE [Concomitant]
     Active Substance: FLUTICASONE\FLUTICASONE PROPIONATE
  8. SILDENAFIL. [Concomitant]
     Active Substance: SILDENAFIL
  9. WARFARIN [Concomitant]
     Active Substance: WARFARIN

REACTIONS (1)
  - Liver function test increased [None]

NARRATIVE: CASE EVENT DATE: 20160111
